FAERS Safety Report 8082429-6 (Version None)
Quarter: 2012Q1

REPORT INFORMATION
  Report Type: 
  Country: None (occurrence: None)
  Receive Date: 20120127
  Receipt Date: 20110219
  Transmission Date: 20120608
  Serious: No
  Sender: FDA-Public Use
  Company Number: US-ABBOTT-11P-163-0706365-00

PATIENT
  Age: 14 Year
  Sex: Female

DRUGS (8)
  1. PREVACID [Concomitant]
     Indication: PROPHYLAXIS
  2. MULTIVITAMIN [Concomitant]
     Indication: PRODUCT USED FOR UNKNOWN INDICATION
  3. VIT C [Concomitant]
     Indication: PRODUCT USED FOR UNKNOWN INDICATION
  4. CALTRATE [Concomitant]
     Indication: PRODUCT USED FOR UNKNOWN INDICATION
  5. HUMIRA [Suspect]
     Indication: PSORIATIC ARTHROPATHY
     Dates: start: 20101101
  6. METHOTREXATE [Concomitant]
     Indication: PSORIATIC ARTHROPATHY
  7. FOLIC ACID [Concomitant]
     Indication: PRODUCT USED FOR UNKNOWN INDICATION
  8. VOLTAREN [Concomitant]
     Indication: PAIN
     Dosage: 1 TABLET IN AM AND IN PM

REACTIONS (3)
  - NASAL CONGESTION [None]
  - RHINORRHOEA [None]
  - OROPHARYNGEAL PAIN [None]
